FAERS Safety Report 20905952 (Version 1)
Quarter: 2022Q2

REPORT INFORMATION
  Report Type: Spontaneous
  Country: US (occurrence: None)
  Receive Date: 20220602
  Receipt Date: 20220602
  Transmission Date: 20220721
  Serious: Yes (Hospitalization)
  Sender: FDA-Public Use
  Company Number: None

PATIENT
  Age: 73 Year
  Sex: Male
  Weight: 225 kg

DRUGS (1)
  1. SULFAMETHOXAZOLE\TRIAMTERENE [Suspect]
     Active Substance: SULFAMETHOXAZOLE\TRIAMTERENE
     Indication: Urinary tract infection
     Dosage: OTHER QUANTITY : 800/160 MG;?FREQUENCY : TWICE A DAY;?
     Route: 048
     Dates: start: 20220315, end: 20220322

REACTIONS (3)
  - Hyperkalaemia [None]
  - Acute kidney injury [None]
  - Abdominal discomfort [None]

NARRATIVE: CASE EVENT DATE: 20220322
